FAERS Safety Report 25758629 (Version 1)
Quarter: 2025Q3

REPORT INFORMATION
  Report Type: Spontaneous
  Country: JP (occurrence: JP)
  Receive Date: 20250904
  Receipt Date: 20250904
  Transmission Date: 20251020
  Serious: Yes (Other)
  Sender: ALEXION PHARMACEUTICALS
  Company Number: JP-ASTRAZENECA-202509JPN000290JP

PATIENT
  Age: 6 Decade
  Sex: Female

DRUGS (2)
  1. LYNPARZA [Suspect]
     Active Substance: OLAPARIB
     Indication: Pancreatic carcinoma
     Dosage: 300 MILLIGRAM, BID
  2. FLUOROURACIL\IRINOTECAN\LEUCOVORIN\OXALIPLATIN [Concomitant]
     Active Substance: FLUOROURACIL\IRINOTECAN\LEUCOVORIN\OXALIPLATIN
     Route: 065

REACTIONS (4)
  - Malignant neoplasm progression [Unknown]
  - Metastases to liver [Unknown]
  - Nausea [Unknown]
  - Tumour marker increased [Unknown]

NARRATIVE: CASE EVENT DATE: 20250801
